FAERS Safety Report 20819375 (Version 1)
Quarter: 2022Q2

REPORT INFORMATION
  Report Type: Spontaneous
  Country: US (occurrence: US)
  Receive Date: 20220512
  Receipt Date: 20220512
  Transmission Date: 20220720
  Serious: No
  Sender: FDA-Public Use
  Company Number: US-FDC LIMITED-2021RIS00017

PATIENT
  Sex: Female

DRUGS (2)
  1. TIMOLOL MALEATE [Suspect]
     Active Substance: TIMOLOL MALEATE
     Indication: Glaucoma
     Dosage: 1 DROP, 1X/DAY
     Dates: end: 20210820
  2. TIMOLOL MALEATE [Suspect]
     Active Substance: TIMOLOL MALEATE
     Dosage: 1 DROP, 1X/DAY
     Dates: start: 202108

REACTIONS (1)
  - Eye irritation [Recovering/Resolving]

NARRATIVE: CASE EVENT DATE: 20210820
